FAERS Safety Report 26064974 (Version 1)
Quarter: 2025Q4

REPORT INFORMATION
  Report Type: Spontaneous
  Country: CN (occurrence: CN)
  Receive Date: 20251119
  Receipt Date: 20251119
  Transmission Date: 20260119
  Serious: Yes (Life-Threatening, Hospitalization, Other)
  Sender: BAYER HEALTHCARE PHARMACEUTICALS INC.
  Company Number: CN-BAYER-2025A152278

PATIENT
  Age: 73 Year
  Sex: Male
  Weight: 62.6 kg

DRUGS (2)
  1. ULTRAVIST [Suspect]
     Active Substance: IOPROMIDE
     Indication: Bronchial arteriography
     Dosage: 50 ML, ONCE
     Route: 042
     Dates: start: 20251101, end: 20251101
  2. ULTRAVIST [Suspect]
     Active Substance: IOPROMIDE
     Indication: Haemoptysis

REACTIONS (7)
  - Chest pain [Recovering/Resolving]
  - Kounis syndrome [Recovering/Resolving]
  - Stress cardiomyopathy [Recovering/Resolving]
  - Electrocardiogram QT prolonged [None]
  - Contrast media allergy [Recovering/Resolving]
  - Dyspnoea [Recovering/Resolving]
  - Supraventricular extrasystoles [None]

NARRATIVE: CASE EVENT DATE: 20251101
